FAERS Safety Report 10006536 (Version 2)
Quarter: 2014Q2

REPORT INFORMATION
  Report Type: Report from Study
  Country: DE (occurrence: DE)
  Receive Date: 20140313
  Receipt Date: 20140421
  Transmission Date: 20141212
  Serious: Yes (Other)
  Sender: FDA-Public Use
  Company Number: DE-009507513-1403DEU005956

PATIENT
  Sex: 0

DRUGS (4)
  1. COPEGUS [Suspect]
     Dosage: UNK
  2. COPEGUS [Suspect]
     Indication: HEPATITIS C
     Dosage: WEIGHT-BASED
     Route: 048
  3. PEGINTERFERON ALFA-2A [Suspect]
     Indication: HEPATITIS C
     Dosage: UNK
  4. FALDAPREVIR [Suspect]
     Indication: HEPATITIS C
     Dosage: 120 MG, QD

REACTIONS (2)
  - Eczema [Recovered/Resolved]
  - Pruritus [Recovered/Resolved]
